FAERS Safety Report 8996575 (Version 3)
Quarter: 2013Q3

REPORT INFORMATION
  Report Type: Spontaneous
  Country: FR (occurrence: FR)
  Receive Date: 20130104
  Receipt Date: 20130902
  Transmission Date: 20140515
  Serious: Yes (Hospitalization, Other)
  Sender: FDA-Public Use
  Company Number: FR-AMGEN-FRASP2012084336

PATIENT
  Age: 50 Year
  Sex: Female
  Weight: 56 kg

DRUGS (1)
  1. ENBREL [Suspect]
     Indication: PRODUCT USED FOR UNKNOWN INDICATION
     Dosage: 50 MG, WEEKLY
     Route: 065
     Dates: start: 201203

REACTIONS (6)
  - Perforated ulcer [Unknown]
  - Cholecystitis acute [Unknown]
  - Hepatic enzyme increased [Unknown]
  - Immunodeficiency [Unknown]
  - Gastritis [Unknown]
  - Urticaria [Unknown]
